FAERS Safety Report 4761525-2 (Version None)
Quarter: 2005Q3

REPORT INFORMATION
  Report Type: 
  Country: None (occurrence: None)
  Receive Date: 20050906
  Receipt Date: 20050824
  Transmission Date: 20060218
  Serious: Yes (Other)
  Sender: FDA-Public Use
  Company Number: 2005GB01660

PATIENT
  Sex: Female

DRUGS (2)
  1. LOSEC MUPS [Suspect]
     Indication: GASTROOESOPHAGEAL REFLUX DISEASE
     Route: 048
     Dates: start: 20050301
  2. LOSEC MUPS [Suspect]
     Indication: DYSPEPSIA
     Route: 048
     Dates: start: 20050301

REACTIONS (2)
  - GASTRIC DISORDER [None]
  - METAPLASIA [None]
